FAERS Safety Report 11345851 (Version 2)
Quarter: 2015Q4

REPORT INFORMATION
  Report Type: Spontaneous
  Country: US (occurrence: US)
  Receive Date: 20150806
  Receipt Date: 20151001
  Transmission Date: 20160304
  Serious: Yes (Hospitalization, Other)
  Sender: FDA-Public Use
  Company Number: US-009507513-1508USA002477

PATIENT
  Sex: Male
  Weight: 85.71 kg

DRUGS (2)
  1. JANUMET [Suspect]
     Active Substance: METFORMIN HYDROCHLORIDE\SITAGLIPTIN PHOSPHATE
     Indication: TYPE 2 DIABETES MELLITUS
     Dosage: 50/1000 MG ONCE DAILY WITH DINNER
     Route: 048
     Dates: start: 2010, end: 20141229
  2. JANUMET [Suspect]
     Active Substance: METFORMIN HYDROCHLORIDE\SITAGLIPTIN PHOSPHATE
     Dosage: 50/500 MG
     Dates: start: 20120811, end: 20130723

REACTIONS (24)
  - Chronic gastritis [Not Recovered/Not Resolved]
  - Cholelithiasis [Unknown]
  - Renal cyst [Unknown]
  - Bone lesion [Unknown]
  - Drug ineffective [Unknown]
  - Ductal adenocarcinoma of pancreas [Unknown]
  - Spinal osteoarthritis [Unknown]
  - Cholecystitis chronic [Not Recovered/Not Resolved]
  - Hepatic cyst [Unknown]
  - Atelectasis [Unknown]
  - Angiopathy [Unknown]
  - Intestinal obstruction [Unknown]
  - Inappropriate schedule of drug administration [Unknown]
  - Adverse event [Unknown]
  - Tumour invasion [Unknown]
  - Benign prostatic hyperplasia [Unknown]
  - Impaired gastric emptying [Unknown]
  - Chronic kidney disease [Not Recovered/Not Resolved]
  - Hypercholesterolaemia [Unknown]
  - Diabetic retinopathy [Unknown]
  - Arteriosclerosis [Unknown]
  - Hypertension [Unknown]
  - Gastrooesophageal reflux disease [Unknown]
  - Diabetic nephropathy [Unknown]

NARRATIVE: CASE EVENT DATE: 2010
